FAERS Safety Report 5634609-4 (Version None)
Quarter: 2008Q1

REPORT INFORMATION
  Report Type: 
  Country: None (occurrence: None)
  Receive Date: 20080222
  Receipt Date: 20080218
  Transmission Date: 20080703
  Serious: Yes (Other)
  Sender: FDA-Public Use
  Company Number: US-ASTRAZENECA-2007UW25559

PATIENT
  Age: 78 Year
  Sex: Female
  Weight: 55.8 kg

DRUGS (5)
  1. ARIMIDEX [Suspect]
     Indication: BREAST CANCER
     Route: 048
     Dates: start: 20071028
  2. LIPITOR [Concomitant]
  3. TOPROL-XL [Concomitant]
     Route: 048
  4. ALTACE [Concomitant]
  5. ASPIRIN [Concomitant]

REACTIONS (4)
  - EYELID OEDEMA [None]
  - LIP SWELLING [None]
  - PRURITUS [None]
  - URTICARIA [None]
